FAERS Safety Report 9554032 (Version 1)
Quarter: 2013Q3

REPORT INFORMATION
  Report Type: Spontaneous
  Country: US (occurrence: None)
  Receive Date: 20130815
  Receipt Date: 20130815
  Transmission Date: 20140515
  Serious: Yes (Hospitalization, Other)
  Sender: FDA-Public Use
  Company Number: ADR-2013-00832

PATIENT
  Age: 48 Year
  Sex: Female

DRUGS (4)
  1. BACLOFEN [Suspect]
     Indication: PAIN
  2. FENTANYL 1000 MCG/ML [Concomitant]
  3. DILAUDID (HYDROMORPHONE), 1 MG/ ML [Concomitant]
  4. BUPIVACAINE 1% [Concomitant]

REACTIONS (2)
  - Pneumonia [None]
  - Urinary tract infection [None]
